FAERS Safety Report 4803412-7 (Version None)
Quarter: 2005Q4

REPORT INFORMATION
  Report Type: 
  Country: None (occurrence: None)
  Receive Date: 20051014
  Receipt Date: 20051007
  Transmission Date: 20060501
  Serious: Yes (Life-Threatening, Other)
  Sender: FDA-Public Use
  Company Number: HQWYE928107OCT05

PATIENT
  Age: 17 Year
  Sex: Male

DRUGS (4)
  1. TAZOCEL                       (PIPARAPICIL) [Suspect]
     Indication: ABSCESS BACTERIAL
  2. TAZOCEL                       (PIPARAPICIL) [Suspect]
     Indication: LIVER ABSCESS
  3. METRONIDAZOLE [Concomitant]
  4. DIPYRONE TAB [Concomitant]

REACTIONS (5)
  - EOSINOPHIL COUNT INCREASED [None]
  - MARROW HYPERPLASIA [None]
  - NEUTROPENIA [None]
  - PYREXIA [None]
  - RASH [None]
